FAERS Safety Report 4360021-4 (Version None)
Quarter: 2004Q2

REPORT INFORMATION
  Report Type: 
  Country: None (occurrence: None)
  Receive Date: 20040513
  Receipt Date: 20040427
  Transmission Date: 20050107
  Serious: Yes (Other)
  Sender: FDA-Public Use
  Company Number: ZONI001410

PATIENT
  Age: 36 Year
  Sex: Female

DRUGS (1)
  1. ZONEGRAN [Suspect]
     Indication: GRAND MAL CONVULSION
     Dosage: 400 MG DAILY ORAL
     Route: 048
     Dates: start: 20040210

REACTIONS (5)
  - BALANCE DISORDER [None]
  - DISTURBANCE IN ATTENTION [None]
  - HEAD DISCOMFORT [None]
  - HYPERSOMNIA [None]
  - TINNITUS [None]
